APPROVED DRUG PRODUCT: CLOMIPRAMINE HYDROCHLORIDE
Active Ingredient: CLOMIPRAMINE HYDROCHLORIDE
Strength: 50MG
Dosage Form/Route: CAPSULE;ORAL
Application: A074694 | Product #002 | TE Code: AB
Applicant: TARO PHARMACEUTICAL INDUSTRIES LTD
Approved: Dec 31, 1996 | RLD: No | RS: No | Type: RX